FAERS Safety Report 8359611-3 (Version None)
Quarter: 2012Q2

REPORT INFORMATION
  Report Type: 
  Country: None (occurrence: None)
  Receive Date: 20120514
  Receipt Date: 20120514
  Transmission Date: 20120825
  Serious: No
  Sender: FDA-Public Use
  Company Number: None

PATIENT
  Age: 85 Year
  Sex: Male

DRUGS (1)
  1. SPRYCEL 100MG PO DAILY BRISTOL-MYERS SQUIBB [Suspect]
     Dosage: SPRYCEL 100MG DAILY PO
     Route: 048
     Dates: start: 20120101, end: 20120501

REACTIONS (2)
  - DYSPNOEA [None]
  - GASTROOESOPHAGEAL REFLUX DISEASE [None]
